FAERS Safety Report 16110431 (Version 1)
Quarter: 2019Q1

REPORT INFORMATION
  Report Type: Spontaneous
  Country: FR (occurrence: FR)
  Receive Date: 20190325
  Receipt Date: 20190325
  Transmission Date: 20190418
  Serious: Yes (Hospitalization)
  Sender: FDA-Public Use
  Company Number: FR-ACCORD-115340

PATIENT
  Age: 40 Year
  Sex: Male

DRUGS (5)
  1. CLOZAPINE. [Suspect]
     Active Substance: CLOZAPINE
     Indication: SCHIZOPHRENIA
     Route: 048
     Dates: start: 2010
  2. XEROQUEL [Concomitant]
     Active Substance: QUETIAPINE FUMARATE
     Indication: SCHIZOPHRENIA
     Dosage: STRENGTH: 300 MG
     Route: 048
     Dates: start: 2016
  3. NOZINAN [Suspect]
     Active Substance: LEVOMEPROMAZINE
     Indication: SCHIZOPHRENIA
     Dosage: STRENGTH: 25 MG
     Route: 048
     Dates: start: 2012
  4. PARKINANE [Suspect]
     Active Substance: TRIHEXYPHENIDYL HYDROCHLORIDE
     Indication: NERVOUS SYSTEM DISORDER PROPHYLAXIS
     Dosage: STRENGTH: 5 MG
     Route: 048
     Dates: start: 2010
  5. MIANSERIN [Suspect]
     Active Substance: MIANSERIN
     Indication: SCHIZOPHRENIA
     Route: 048
     Dates: start: 2016

REACTIONS (1)
  - Infectious colitis [Recovered/Resolved]

NARRATIVE: CASE EVENT DATE: 20180807
